FAERS Safety Report 20007140 (Version 2)
Quarter: 2021Q4

REPORT INFORMATION
  Report Type: Spontaneous
  Country: PT (occurrence: PT)
  Receive Date: 20211028
  Receipt Date: 20211111
  Transmission Date: 20220303
  Serious: Yes (Other)
  Sender: FDA-Public Use
  Company Number: None

PATIENT
  Age: 72 Year
  Sex: Male
  Weight: 82 kg

DRUGS (3)
  1. LOVENOX [Suspect]
     Active Substance: ENOXAPARIN SODIUM
     Indication: Knee operation
     Dosage: 40 MG, QD (1 X DAY)
     Route: 058
     Dates: start: 20210913
  2. ACEMETACIN [Concomitant]
     Active Substance: ACEMETACIN
     Dosage: 60 MG
  3. ACETAMINOPHEN\TRAMADOL [Concomitant]
     Active Substance: ACETAMINOPHEN\TRAMADOL
     Dosage: 725 MG

REACTIONS (1)
  - Feeling hot [Not Recovered/Not Resolved]

NARRATIVE: CASE EVENT DATE: 20210913
